FAERS Safety Report 4899983-5 (Version None)
Quarter: 2006Q1

REPORT INFORMATION
  Report Type: 
  Country: None (occurrence: None)
  Receive Date: 20060201
  Receipt Date: 20060113
  Transmission Date: 20060701
  Serious: Yes (Hospitalization, Other)
  Sender: FDA-Public Use
  Company Number: US_0508120888

PATIENT
  Age: 62 Year
  Sex: Male
  Weight: 102 kg

DRUGS (12)
  1. ZYPREXA [Suspect]
     Indication: SCHIZOPHRENIA
     Dosage: 20 MG, DAILY (1/D),
     Dates: start: 20020101
  2. REMERON [Concomitant]
  3. COUMADIN (WAFARIN SODIUM) [Concomitant]
  4. BETA BLOCKING AGENTS [Concomitant]
  5. LOPRESSOR [Concomitant]
  6. REGLAN/USA/(METOCLOPRAMIDE HYDROCHLORIDE) [Concomitant]
  7. FOLIC ACID (FOLIC ACID UNKNOWN MANUFACTURER) [Concomitant]
  8. ASPIRIN [Concomitant]
  9. PRILOSEC [Concomitant]
  10. ZANTAC [Concomitant]
  11. MEGACE [Concomitant]
  12. LISINOPRIL [Concomitant]

REACTIONS (15)
  - ANOREXIA [None]
  - DEEP VEIN THROMBOSIS [None]
  - DEHYDRATION [None]
  - DIABETES MELLITUS [None]
  - DIARRHOEA [None]
  - DYSPHAGIA [None]
  - METASTASES TO LIVER [None]
  - NAUSEA [None]
  - OBESITY [None]
  - PANCREATIC CARCINOMA METASTATIC [None]
  - REFUSAL OF TREATMENT BY PATIENT [None]
  - SUPRAVENTRICULAR TACHYCARDIA [None]
  - URINARY INCONTINENCE [None]
  - WEIGHT DECREASED [None]
  - WEIGHT INCREASED [None]
